FAERS Safety Report 5880030-3 (Version None)
Quarter: 2008Q3

REPORT INFORMATION
  Report Type: 
  Country: None (occurrence: None)
  Receive Date: 20080912
  Receipt Date: 20080902
  Transmission Date: 20090109
  Serious: Yes (Hospitalization)
  Sender: FDA-Public Use
  Company Number: FR-SANOFI-SYNTHELABO-A02200802613

PATIENT
  Sex: Male

DRUGS (4)
  1. SERETIDE [Concomitant]
     Indication: DRUG USE FOR UNKNOWN INDICATION
     Dosage: UNK
     Route: 055
     Dates: end: 20080620
  2. STILNOX [Suspect]
     Indication: DRUG USE FOR UNKNOWN INDICATION
     Dosage: UNK
     Route: 048
     Dates: end: 20080620
  3. TRANXENE [Suspect]
     Indication: DRUG USE FOR UNKNOWN INDICATION
     Dosage: UNK
     Route: 048
     Dates: end: 20080620
  4. HEXAQUINE [Suspect]
     Indication: DRUG USE FOR UNKNOWN INDICATION
     Dosage: UNK
     Route: 048
     Dates: end: 20080620

REACTIONS (4)
  - CYTOLYTIC HEPATITIS [None]
  - DRUG ERUPTION [None]
  - EOSINOPHILIA [None]
  - LEUKOCYTOSIS [None]
